FAERS Safety Report 19144809 (Version 1)
Quarter: 2021Q2

REPORT INFORMATION
  Report Type: Spontaneous
  Country: CN (occurrence: CN)
  Receive Date: 20210416
  Receipt Date: 20210416
  Transmission Date: 20210717
  Serious: Yes (Hospitalization)
  Sender: FDA-Public Use
  Company Number: CN-BAXTER-2021BAX007414

PATIENT
  Age: 16 Year
  Sex: Male
  Weight: 74 kg

DRUGS (2)
  1. 0.9% SODIUM CHLORIDE INJECTION [Suspect]
     Active Substance: SODIUM CHLORIDE
     Indication: MEDICATION DILUTION
     Dosage: HOLOXAN POWDER FOR INJECTION 5 G + NS 500ML
     Route: 041
     Dates: start: 20210304, end: 20210308
  2. HOLOXAN [Suspect]
     Active Substance: IFOSFAMIDE
     Indication: OSTEOSARCOMA
     Dosage: HOLOXAN POWDER FOR INJECTION 5 G + NS 500ML
     Route: 041
     Dates: start: 20210304, end: 20210308

REACTIONS (1)
  - Myelosuppression [Recovering/Resolving]

NARRATIVE: CASE EVENT DATE: 20210314
